FAERS Safety Report 24566268 (Version 2)
Quarter: 2024Q4

REPORT INFORMATION
  Report Type: Report from Study
  Country: CA (occurrence: CA)
  Receive Date: 20241030
  Receipt Date: 20241203
  Transmission Date: 20250114
  Serious: Yes (Hospitalization)
  Sender: OTSUKA
  Company Number: CA-OTSUKA-2024_026330

PATIENT
  Sex: Female

DRUGS (1)
  1. ARIPIPRAZOLE [Suspect]
     Active Substance: ARIPIPRAZOLE
     Indication: Product used for unknown indication
     Dosage: 200 MG EVERY 4 WEEKS
     Route: 030

REACTIONS (7)
  - Dehydration [Unknown]
  - Catatonia [Unknown]
  - Depression [Unknown]
  - Decreased appetite [Unknown]
  - Dizziness [Unknown]
  - Poor personal hygiene [Unknown]
  - Underdose [Unknown]
